FAERS Safety Report 8369464-5 (Version None)
Quarter: 2012Q2

REPORT INFORMATION
  Report Type: 
  Country: None (occurrence: None)
  Receive Date: 20120518
  Receipt Date: 20120508
  Transmission Date: 20120825
  Serious: Yes (Other)
  Sender: FDA-Public Use
  Company Number: HR-PFIZER INC-2012118114

PATIENT
  Sex: Female

DRUGS (2)
  1. PANTOPRAZOLE [Suspect]
     Indication: GASTRIC DISORDER
     Dosage: 40 MG
     Dates: start: 20120324, end: 20120507
  2. PHYSIOTENS [Concomitant]
     Dosage: UNK
     Dates: start: 20120101

REACTIONS (3)
  - OEDEMA PERIPHERAL [None]
  - DERMATITIS BULLOUS [None]
  - PRURITUS [None]
